FAERS Safety Report 25150306 (Version 3)
Quarter: 2025Q2

REPORT INFORMATION
  Report Type: Spontaneous
  Country: CA (occurrence: CA)
  Receive Date: 20250402
  Receipt Date: 20250410
  Transmission Date: 20250717
  Serious: Yes (Hospitalization, Other)
  Sender: CELLTRION
  Company Number: CA-PFIZER INC-202500065058

PATIENT

DRUGS (2)
  1. RENFLEXIS [Suspect]
     Active Substance: INFLIXIMAB-ABDA
     Dates: start: 202403, end: 20240903
  2. INFLIXIMAB [Suspect]
     Active Substance: INFLIXIMAB
     Dates: start: 202403, end: 20240903

REACTIONS (9)
  - Pancreatitis acute [Unknown]
  - Granulomatous liver disease [Unknown]
  - Liver function test abnormal [Unknown]
  - Fatigue [Unknown]
  - Chest discomfort [Unknown]
  - Pruritus [Unknown]
  - Drug level below therapeutic [Unknown]
  - Drug specific antibody present [Unknown]
  - Off label use [Unknown]

NARRATIVE: CASE EVENT DATE: 20240301
